FAERS Safety Report 18193093 (Version 1)
Quarter: 2020Q3

REPORT INFORMATION
  Report Type: Spontaneous
  Country: US (occurrence: US)
  Receive Date: 20200825
  Receipt Date: 20200825
  Transmission Date: 20201103
  Serious: Yes (Hospitalization)
  Sender: FDA-Public Use
  Company Number: US-PFIZER INC-2020326949

PATIENT
  Sex: Male

DRUGS (3)
  1. DILANTIN [Suspect]
     Active Substance: PHENYTOIN
     Dosage: 330 MG, DAILY [200MG IN MORNING, 130MG AT NIGHT]
     Route: 048
  2. DILANTIN [Suspect]
     Active Substance: PHENYTOIN
     Dosage: UNK
     Dates: start: 1981
  3. DILANTIN [Suspect]
     Active Substance: PHENYTOIN
     Dosage: 100 MG

REACTIONS (1)
  - Cerebrovascular accident [Unknown]
